APPROVED DRUG PRODUCT: TADLIQ
Active Ingredient: TADALAFIL
Strength: 20MG/5ML
Dosage Form/Route: SUSPENSION;ORAL
Application: N214522 | Product #001
Applicant: CMP DEVELOPMENT LLC
Approved: Jun 17, 2022 | RLD: Yes | RS: Yes | Type: RX

PATENTS:
Patent 11975006 | Expires: Dec 24, 2038
Patent 12186322 | Expires: Dec 24, 2038
Patent 11382917 | Expires: Dec 24, 2038
Patent 11666576 | Expires: Dec 24, 2038